FAERS Safety Report 5867786-0 (Version None)
Quarter: 2008Q3

REPORT INFORMATION
  Report Type: 
  Country: None (occurrence: None)
  Receive Date: 20080902
  Receipt Date: 20080820
  Transmission Date: 20090109
  Serious: Yes (Other)
  Sender: FDA-Public Use
  Company Number: CA-ELI_LILLY_AND_COMPANY-CA200808004340

PATIENT
  Age: 75 Year
  Sex: Male

DRUGS (2)
  1. CYMBALTA [Suspect]
     Dosage: 1 D/F, UNK
  2. CELEXA [Concomitant]

REACTIONS (1)
  - CEREBROVASCULAR ACCIDENT [None]
